FAERS Safety Report 5320015-9 (Version None)
Quarter: 2007Q1

REPORT INFORMATION
  Report Type: 
  Country: None (occurrence: None)
  Receive Date: 20070209
  Receipt Date: 20061019
  Transmission Date: 20070707
  Serious: Yes (Other)
  Sender: FDA-Public Use
  Company Number: 200618692US

PATIENT
  Age: 65 Year
  Sex: Female

DRUGS (12)
  1. INSULIN GLULISINE ( APIDRA) [Suspect]
     Indication: DIABETES MELLITUS NON-INSULIN-DEPENDENT
     Dates: start: 20061019
  2. OPTICLIK [Suspect]
     Dates: start: 20061019
  3. ASPIRIN [Concomitant]
  4. CITALOPRAM HYDROBROMIDE (CELEXA /00582602/) [Concomitant]
  5. METFORMIN HCL [Concomitant]
  6. ATORVASTATIN CALCIUM (LIPITOR) [Concomitant]
  7. METOPROLOL TARTRATE [Concomitant]
  8. AMARYL [Concomitant]
  9. TRAMADOL HCL [Concomitant]
  10. TOCOPHERYL ACETATE (VITAMIN E) [Concomitant]
  11. CLOPIDOGREL (PLAVIX ASCORBIC ACID, TOCOPHERYL ACETATE, RETINOL, ZINC, [Concomitant]
  12. BYETTA [Concomitant]

REACTIONS (2)
  - BLOOD GLUCOSE INCREASED [None]
  - HYPERGLYCAEMIA [None]
